FAERS Safety Report 5390850-X (Version None)
Quarter: 2007Q3

REPORT INFORMATION
  Report Type: 
  Country: None (occurrence: None)
  Receive Date: 20070716
  Receipt Date: 20070706
  Transmission Date: 20080115
  Serious: Yes (Hospitalization)
  Sender: FDA-Public Use
  Company Number: 07H-087-0312851-00

PATIENT
  Age: 61 Year
  Sex: Male
  Weight: 52 kg

DRUGS (25)
  1. PRECEDEX [Suspect]
     Indication: SEDATION
     Dosage: 0.15-0.39 MCG/KG/HR, , INTRAVENOUS
     Dates: start: 20060224, end: 20060224
  2. VANCOMYCIN [Concomitant]
  3. BIAPENEM (OMEGACIN) (BIAPENEM) [Concomitant]
  4. INSULIN (INSULIN) [Concomitant]
  5. CIMETADINE (TAGAMET) (CIMETIDINE) [Concomitant]
  6. 10% TRANEXAMIC ACID (TRANSAMIN) (TRANEXAMIC ACID) [Concomitant]
  7. CARBAZOCHROME SODIUM SULFONATE (ADONA) (CARBAZOCHROME SODIUM SULFONATE [Concomitant]
  8. HUMAN SERUM ALBUMIN (ALBUMINR) (ALBUMIN HUMAN) [Concomitant]
  9. PANCURONIUM BROMIDE (MIOBLOCK) (PANCURONIUM BROMIDE) [Concomitant]
  10. VECURONIUM BROMIDE (MUSCULAX) (VECURONIUM BROMIDE) [Concomitant]
  11. LIDOCAINE HYDROCHLORIDE (LIDOQUICK) (LIDOCAINE HYDROCHLORIDE) [Concomitant]
  12. FAMOTIDINE (GASTER) (FAMOTIDINE) [Concomitant]
  13. VERAPAMIL HYDROCHLORIDE (VASOLAN) (VERAPAMIL HYDROCHLORIDE) [Concomitant]
  14. EPHEDRINE HYDROCHLORIDE (EPHEDRINE HYDROCHLORIDE) [Concomitant]
  15. PHENYLEPHRINE HYDROCHLORIDE (NEO-SYNESIN) (PHENYLEPHRINE HYDROCHLORIDE [Concomitant]
  16. HEPARIN [Concomitant]
  17. FUROSEMIDE [Concomitant]
  18. NITROGLYCERIN (MILLISROL) (GLYCERYL TRINITRATE) [Concomitant]
  19. NICARDIPINE HYDROCHLORIDE (PERDIPINE) (NICARDIPINE HYDROCHLORIDE) [Concomitant]
  20. SIVELSESTAT SODIUM HYDRATE (ELASPOL) (SIVELESTAT) [Concomitant]
  21. PROPOFOL (DIPRIVAN) (PROPOFOL) [Concomitant]
  22. PROTAMINE SULFATE [Concomitant]
  23. CALCIUM GLUCONATE [Concomitant]
  24. FENTANYL CITRATE (FENTANEST) (FENTANYL CITRATE) [Concomitant]
  25. INSULIN HUMAN (GENETICAL RECOMBINATION) (HUMULIN R) (INSULIN HUMAN) [Concomitant]

REACTIONS (3)
  - ALANINE AMINOTRANSFERASE INCREASED [None]
  - ASPARTATE AMINOTRANSFERASE INCREASED [None]
  - BLOOD BILIRUBIN INCREASED [None]
